FAERS Safety Report 12396944 (Version 1)
Quarter: 2016Q2

REPORT INFORMATION
  Report Type: Spontaneous
  Country: CH (occurrence: FR)
  Receive Date: 20160524
  Receipt Date: 20160524
  Transmission Date: 20160815
  Serious: Yes (Hospitalization)
  Sender: FDA-Public Use
  Company Number: CH-SA-2016SA094496

PATIENT
  Sex: Male

DRUGS (5)
  1. CEFOTAXIME SODIUM [Suspect]
     Active Substance: CEFOTAXIME SODIUM
     Indication: BACTERAEMIA
     Route: 065
     Dates: start: 2015
  2. GENTAMICIN. [Suspect]
     Active Substance: GENTAMICIN
     Indication: URINARY TRACT INFECTION
     Route: 065
     Dates: start: 2015
  3. OFLOXACIN. [Concomitant]
     Active Substance: OFLOXACIN
     Dates: start: 2015, end: 2015
  4. CEFOTAXIME SODIUM [Suspect]
     Active Substance: CEFOTAXIME SODIUM
     Indication: URINARY TRACT INFECTION
     Route: 065
     Dates: start: 2015
  5. GENTAMICIN. [Suspect]
     Active Substance: GENTAMICIN
     Indication: BACTERAEMIA
     Route: 065
     Dates: start: 2015

REACTIONS (4)
  - Klebsiella infection [Unknown]
  - Drug resistance [Unknown]
  - Pyelonephritis [Unknown]
  - Acute kidney injury [Unknown]

NARRATIVE: CASE EVENT DATE: 201503
